FAERS Safety Report 7215634-9 (Version None)
Quarter: 2011Q1

REPORT INFORMATION
  Report Type: 
  Country: None (occurrence: None)
  Receive Date: 20110105
  Receipt Date: 20110105
  Transmission Date: 20110831
  Serious: Yes (Life-Threatening, Hospitalization)
  Sender: FDA-Public Use
  Company Number: None

PATIENT
  Age: 63 Year
  Sex: Male
  Weight: 79.4 kg

DRUGS (2)
  1. IRINOTECAN HCL [Suspect]
     Indication: NEOPLASM MALIGNANT
     Dosage: 330 MG OTHER IV
     Route: 042
     Dates: start: 20100817, end: 20101105
  2. CETUXIMAB [Suspect]
     Indication: NEOPLASM MALIGNANT
     Dosage: 500 MG QWEEK IV
     Route: 042
     Dates: start: 20100817, end: 20101102

REACTIONS (9)
  - DEHYDRATION [None]
  - LEUKOPENIA [None]
  - CLOSTRIDIAL INFECTION [None]
  - HYPOMAGNESAEMIA [None]
  - WHITE BLOOD CELL COUNT DECREASED [None]
  - DIARRHOEA [None]
  - HYPOTENSION [None]
  - ANAEMIA [None]
  - ASTHENIA [None]
